FAERS Safety Report 14497436 (Version 1)
Quarter: 2018Q1

REPORT INFORMATION
  Report Type: Spontaneous
  Country: US (occurrence: US)
  Receive Date: 20180207
  Receipt Date: 20180207
  Transmission Date: 20180509
  Serious: Yes (Hospitalization, Other)
  Sender: FDA-Public Use
  Company Number: US-JNJFOC-20180204026

PATIENT
  Age: 44 Year
  Sex: Female
  Weight: 83.01 kg

DRUGS (4)
  1. TESSALON [Concomitant]
     Active Substance: BENZONATATE
     Indication: ASTHMA
     Route: 065
  2. TOPAMAX [Suspect]
     Active Substance: TOPIRAMATE
     Indication: MIGRAINE PROPHYLAXIS
     Dosage: 150MG IN THE MORNING AND 150MG IN THE EVENING
     Route: 048
  3. LISINOPRIL. [Concomitant]
     Active Substance: LISINOPRIL
     Indication: BLOOD PRESSURE MEASUREMENT
     Route: 065
  4. TESSALON [Concomitant]
     Active Substance: BENZONATATE
     Indication: COUGH
     Route: 065

REACTIONS (6)
  - Seizure [Recovered/Resolved]
  - Ocular vascular disorder [Unknown]
  - Fall [Recovered/Resolved]
  - Drug dose omission [Unknown]
  - Head injury [Unknown]
  - Joint lock [Recovered/Resolved]

NARRATIVE: CASE EVENT DATE: 201711
